FAERS Safety Report 11251288 (Version 1)
Quarter: 2015Q3

REPORT INFORMATION
  Report Type: Spontaneous
  Country: US (occurrence: US)
  Receive Date: 20150708
  Receipt Date: 20150708
  Transmission Date: 20151125
  Serious: No
  Sender: FDA-Public Use
  Company Number: US-ELI_LILLY_AND_COMPANY-US201110006808

PATIENT
  Sex: Female
  Weight: 64.85 kg

DRUGS (1)
  1. ALIMTA [Suspect]
     Active Substance: PEMETREXED DISODIUM
     Indication: NON-SMALL CELL LUNG CANCER
     Dosage: 850 MG, EVERY 3 WEEKS
     Route: 042
     Dates: start: 20040901

REACTIONS (1)
  - Cerebral atrophy [Recovered/Resolved]
